FAERS Safety Report 16793118 (Version 2)
Quarter: 2019Q4

REPORT INFORMATION
  Report Type: Spontaneous
  Country: JP (occurrence: JP)
  Receive Date: 20190911
  Receipt Date: 20191021
  Transmission Date: 20200122
  Serious: No
  Sender: FDA-Public Use
  Company Number: JP-AMGEN-JPNSP2019064437

PATIENT
  Age: 7 Decade
  Sex: Female
  Weight: 55.5 kg

DRUGS (13)
  1. IRINOTECAN HYDROCHLORIDE. [Suspect]
     Active Substance: IRINOTECAN HYDROCHLORIDE
     Indication: COLON CANCER
     Dosage: 226 MILLIGRAM, Q3WK
     Route: 042
     Dates: start: 20190308
  2. CALCIUM LEVOFOLINATE [Suspect]
     Active Substance: LEVOLEUCOVORIN CALCIUM
     Dosage: UNK UNK, Q3WK
     Route: 042
     Dates: start: 20190828
  3. FLUOROURACIL. [Suspect]
     Active Substance: FLUOROURACIL
     Dosage: UNK UNK, Q3WK
     Route: 042
     Dates: start: 20190828
  4. HIRUDOID [Concomitant]
     Active Substance: GLYCOSAMINOGLYCANS
     Dosage: UNK
     Route: 065
  5. IRINOTECAN HYDROCHLORIDE. [Suspect]
     Active Substance: IRINOTECAN HYDROCHLORIDE
     Dosage: UNK UNK, Q3WK
     Route: 041
     Dates: start: 20190828
  6. FLUOROURACIL. [Suspect]
     Active Substance: FLUOROURACIL
     Indication: COLON CANCER
     Dosage: 3896 MILLIGRAM, Q3WK
     Route: 042
     Dates: start: 20190308
  7. CALCIUM LEVOFOLINATE [Suspect]
     Active Substance: LEVOLEUCOVORIN CALCIUM
     Indication: COLON CANCER
     Dosage: 297 MILLIGRAM, Q3WK
     Route: 042
     Dates: start: 20190308
  8. DEXART [Concomitant]
     Active Substance: DEXAMETHASONE SODIUM PHOSPHATE
     Indication: COLON CANCER
     Dosage: 6.6 MILLIGRAM, Q3WK
     Route: 042
     Dates: start: 20190308
  9. LOCOID [Concomitant]
     Active Substance: HYDROCORTISONE BUTYRATE
     Dosage: UNK
     Route: 065
  10. VECTIBIX [Suspect]
     Active Substance: PANITUMUMAB
     Indication: COLON CANCER
     Dosage: 315 MILLIGRAM, Q3WK
     Route: 042
     Dates: start: 20190308, end: 20190731
  11. VECTIBIX [Suspect]
     Active Substance: PANITUMUMAB
     Dosage: 295 MILLIGRAM, Q4WK
     Route: 042
     Dates: start: 20190828
  12. GRANISETRON [GRANISETRON HYDROCHLORIDE] [Concomitant]
     Active Substance: GRANISETRON HYDROCHLORIDE
     Indication: COLON CANCER
     Dosage: 3 MILLIGRAM, Q3WK
     Route: 042
     Dates: start: 20190308
  13. MINOCYCLINE HYDROCHLORIDE. [Concomitant]
     Active Substance: MINOCYCLINE HYDROCHLORIDE
     Dosage: 200 MILLIGRAM
     Route: 065

REACTIONS (8)
  - Neutrophil count decreased [Recovering/Resolving]
  - Stomatitis [Not Recovered/Not Resolved]
  - Pruritus [Not Recovered/Not Resolved]
  - Taste disorder [Unknown]
  - Rash [Not Recovered/Not Resolved]
  - Neutrophil count decreased [Recovering/Resolving]
  - Alopecia [Not Recovered/Not Resolved]
  - Malaise [Unknown]

NARRATIVE: CASE EVENT DATE: 20190327
